FAERS Safety Report 9929380 (Version 1)
Quarter: 2014Q1

REPORT INFORMATION
  Report Type: Spontaneous
  Country: DK (occurrence: DE)
  Receive Date: 20140227
  Receipt Date: 20140227
  Transmission Date: 20141002
  Serious: Yes (Other)
  Sender: FDA-Public Use
  Company Number: DE-FRI-1000054668

PATIENT
  Age: 0 None
  Sex: Female
  Weight: 3.7 kg

DRUGS (5)
  1. CITALOPRAM [Suspect]
     Indication: DEPRESSION
     Dosage: 30 MG
     Route: 064
     Dates: start: 20120806, end: 20130509
  2. CITALOPRAM [Suspect]
     Route: 063
  3. LAMOTRIGIN [Suspect]
     Indication: BIPOLAR DISORDER
     Dosage: 300 MG
     Route: 064
     Dates: start: 20120806, end: 20130509
  4. LAMOTRIGIN [Suspect]
     Route: 063
  5. VELNATAL PLUS [Concomitant]
     Indication: PROPHYLAXIS OF NEURAL TUBE DEFECT
     Dosage: 0.4 MG
     Route: 064

REACTIONS (5)
  - Neonatal infection [Recovered/Resolved]
  - Feeding disorder neonatal [Recovered/Resolved]
  - Somnolence [Recovered/Resolved]
  - Foetal exposure during pregnancy [Recovered/Resolved]
  - Exposure during breast feeding [Recovered/Resolved]
